FAERS Safety Report 4280899-2 (Version None)
Quarter: 2004Q1

REPORT INFORMATION
  Report Type: 
  Country: None (occurrence: None)
  Receive Date: 20040128
  Receipt Date: 20040128
  Transmission Date: 20041129
  Serious: Yes (Other)
  Sender: FDA-Public Use
  Company Number: None

PATIENT
  Age: 71 Year
  Sex: Female
  Weight: 65 kg

DRUGS (1)
  1. PROLEUKIN [Suspect]
     Indication: METASTATIC MALIGNANT MELANOMA
     Dosage: 720,000 IU/KG IV Q 8 HRS X 12 DOSES
     Route: 042
     Dates: start: 20040119, end: 20040123

REACTIONS (2)
  - CAPILLARY LEAK SYNDROME [None]
  - HYPOTENSION [None]
